FAERS Safety Report 4763513-9 (Version None)
Quarter: 2005Q3

REPORT INFORMATION
  Report Type: 
  Country: None (occurrence: None)
  Receive Date: 20050908
  Receipt Date: 20050830
  Transmission Date: 20060218
  Serious: Yes (Hospitalization)
  Sender: FDA-Public Use
  Company Number: US-JNJFOC-20050900205

PATIENT
  Sex: Female
  Weight: 86.18 kg

DRUGS (3)
  1. TOPAMAX [Suspect]
     Route: 048
  2. TOPAMAX [Suspect]
     Indication: WEIGHT LOSS DIET
     Route: 048
  3. ALLEGRA [Concomitant]
     Route: 065

REACTIONS (3)
  - ALOPECIA [None]
  - CHOLELITHIASIS [None]
  - WEIGHT DECREASED [None]
